FAERS Safety Report 10004021 (Version 2)
Quarter: 2014Q1

REPORT INFORMATION
  Report Type: Spontaneous
  Country: US (occurrence: US)
  Receive Date: 20140312
  Receipt Date: 20140312
  Transmission Date: 20141002
  Serious: Yes (Disabling)
  Sender: FDA-Public Use
  Company Number: US-GE HEALTHCARE MEDICAL DIAGNOSTICS-OSCN-PR-0806S-0327

PATIENT
  Sex: Female

DRUGS (13)
  1. OMNISCAN [Suspect]
     Indication: DEMYELINATION
     Dates: start: 19990608, end: 19990608
  2. OMNISCAN [Suspect]
     Indication: VASCULITIS
     Route: 042
     Dates: start: 19990808, end: 19990808
  3. GADOLINIUM (UNSPECIFIED) [Suspect]
     Indication: CENTRAL NERVOUS SYSTEM LESION
     Route: 065
     Dates: start: 20000426, end: 20000426
  4. GADOLINIUM (UNSPECIFIED) [Suspect]
     Route: 065
     Dates: start: 19990808, end: 19990808
  5. GADOLINIUM (UNSPECIFIED) [Suspect]
     Route: 065
     Dates: start: 20000426, end: 20000426
  6. MAGNEVIST [Suspect]
     Indication: ATAXIA
     Route: 065
     Dates: start: 19990316, end: 19990316
  7. MAGNEVIST [Suspect]
     Indication: HYPOTENSION
     Route: 065
     Dates: start: 19990524, end: 19990524
  8. MAGNEVIST [Suspect]
     Indication: CENTRAL NERVOUS SYSTEM LESION
     Route: 065
     Dates: start: 19990720, end: 19990720
  9. EPOGEN [Suspect]
  10. IRON DEXTRAN [Suspect]
  11. OPTIRAY 320 [Concomitant]
  12. PREDNISONE [Concomitant]
  13. FERRO SEQUELS [Concomitant]

REACTIONS (1)
  - Nephrogenic systemic fibrosis [Not Recovered/Not Resolved]
